FAERS Safety Report 6510570-5 (Version None)
Quarter: 2009Q4

REPORT INFORMATION
  Report Type: 
  Country: None (occurrence: None)
  Receive Date: 20091222
  Receipt Date: 20091028
  Transmission Date: 20100525
  Serious: No
  Sender: FDA-Public Use
  Company Number: US-ASTRAZENECA-2009SE23221

PATIENT
  Age: 61 Year
  Sex: Male

DRUGS (7)
  1. CRESTOR [Suspect]
     Route: 048
     Dates: start: 20090101, end: 20090301
  2. CRESTOR [Suspect]
     Route: 048
     Dates: start: 20090301, end: 20091001
  3. CO Q-10 [Concomitant]
  4. FISH OIL [Concomitant]
  5. CARNITENE [Concomitant]
  6. ASPIRIN [Concomitant]
  7. ACIDFEX [Concomitant]

REACTIONS (5)
  - BURNING SENSATION [None]
  - DIZZINESS [None]
  - HEPATIC ENZYME INCREASED [None]
  - MYALGIA [None]
  - NAUSEA [None]
